FAERS Safety Report 16230872 (Version 4)
Quarter: 2019Q2

REPORT INFORMATION
  Report Type: Spontaneous
  Country: JP (occurrence: JP)
  Receive Date: 20190423
  Receipt Date: 20190522
  Transmission Date: 20190711
  Serious: Yes (Other)
  Sender: FDA-Public Use
  Company Number: JP-TAKEDA-2019TEU004755

PATIENT
  Age: 66 Year
  Sex: Male
  Weight: 52.7 kg

DRUGS (1)
  1. BERIPLAST P /00949601/ [Suspect]
     Active Substance: APROTININ\CALCIUM CHLORIDE\FIBRINOGEN HUMAN\FACTOR XIII CONCENTRATE (HUMAN)\THROMBIN
     Indication: SURGERY
     Dosage: UNK
     Route: 065

REACTIONS (1)
  - Eosinophilic pneumonia [Unknown]
